FAERS Safety Report 4497964-7 (Version None)
Quarter: 2004Q4

REPORT INFORMATION
  Report Type: 
  Country: None (occurrence: None)
  Receive Date: 20041105
  Receipt Date: 20041027
  Transmission Date: 20050328
  Serious: Yes (Life-Threatening, Hospitalization)
  Sender: FDA-Public Use
  Company Number: K200401656

PATIENT
  Age: 26 Year
  Sex: Male
  Weight: 76.2 kg

DRUGS (2)
  1. LEVOXYL [Suspect]
     Dosage: SEE IMAGE
     Route: 048
     Dates: start: 20020101
  2. ALCOHOL (ETHANOL) [Suspect]
     Dosage: ORAL
     Route: 048

REACTIONS (17)
  - AFFECT LABILITY [None]
  - ALCOHOL INTERACTION [None]
  - ALCOHOL USE [None]
  - ALOPECIA [None]
  - APPENDICITIS PERFORATED [None]
  - BACK PAIN [None]
  - BLOOD THYROID STIMULATING HORMONE INCREASED [None]
  - CARDIAC FAILURE CONGESTIVE [None]
  - DEPRESSION [None]
  - DRUG INTERACTION [None]
  - FATIGUE [None]
  - INSOMNIA [None]
  - PERITONITIS [None]
  - POST PROCEDURAL COMPLICATION [None]
  - PULMONARY OEDEMA [None]
  - SLEEP DISORDER [None]
  - WEIGHT DECREASED [None]
